FAERS Safety Report 25023678 (Version 3)
Quarter: 2025Q2

REPORT INFORMATION
  Report Type: Spontaneous
  Country: US (occurrence: US)
  Receive Date: 20250228
  Receipt Date: 20250613
  Transmission Date: 20250717
  Serious: Yes (Other)
  Sender: BLUEPRINT MEDICINES
  Company Number: US-Blueprint Medicines Corporation-2025-AER-00373

PATIENT
  Age: 78 Year
  Sex: Female

DRUGS (1)
  1. AYVAKIT [Suspect]
     Active Substance: AVAPRITINIB
     Indication: Systemic mastocytosis
     Route: 048
     Dates: start: 20250208

REACTIONS (9)
  - Foreign body in throat [Unknown]
  - Transient ischaemic attack [Unknown]
  - Dizziness [Unknown]
  - Lacrimation increased [Unknown]
  - Limb injury [Unknown]
  - Brain fog [Unknown]
  - Feeling abnormal [Unknown]
  - Skin disorder [Unknown]
  - Product physical issue [Unknown]
